FAERS Safety Report 13227818 (Version 1)
Quarter: 2017Q1

REPORT INFORMATION
  Report Type: Report from Study
  Country: DE (occurrence: DE)
  Receive Date: 20170213
  Receipt Date: 20170213
  Transmission Date: 20170428
  Serious: Yes (Other)
  Sender: FDA-Public Use
  Company Number: DE-MYLANLABS-2017M1007727

PATIENT

DRUGS (3)
  1. PAZOPANIB [Suspect]
     Active Substance: PAZOPANIB
     Indication: FEMALE REPRODUCTIVE NEOPLASM
     Route: 048
  2. CARBOPLATIN. [Suspect]
     Active Substance: CARBOPLATIN
     Indication: FEMALE REPRODUCTIVE NEOPLASM
     Dosage: AUC 5; 6 CYCLES
     Route: 065
  3. PACLITAXEL. [Suspect]
     Active Substance: PACLITAXEL
     Indication: FEMALE REPRODUCTIVE NEOPLASM
     Dosage: 6 CYCLES
     Route: 065

REACTIONS (1)
  - Intestinal perforation [Unknown]
